FAERS Safety Report 17248397 (Version 1)
Quarter: 2020Q1

REPORT INFORMATION
  Report Type: Report from Study
  Country: US (occurrence: US)
  Receive Date: 20200108
  Receipt Date: 20200108
  Transmission Date: 20200409
  Serious: Yes (Death, Hospitalization)
  Sender: FDA-Public Use
  Company Number: NVSC2019US051718

PATIENT
  Sex: Female

DRUGS (3)
  1. CARBOPLATIN FOR INJECTION [Suspect]
     Active Substance: CARBOPLATIN
     Indication: OVARIAN EPITHELIAL CANCER STAGE IV
     Dosage: UNK
     Route: 042
     Dates: start: 20191108, end: 20191108
  2. INC424A [Suspect]
     Active Substance: RUXOLITINIB
     Indication: OVARIAN EPITHELIAL CANCER STAGE IV
     Dosage: UNK
     Route: 048
     Dates: start: 20191108, end: 20191118
  3. PACLITAXEL. [Suspect]
     Active Substance: PACLITAXEL
     Indication: OVARIAN EPITHELIAL CANCER STAGE IV
     Dosage: UNK
     Route: 042
     Dates: start: 20191108, end: 20191114

REACTIONS (6)
  - Neutropenia [Unknown]
  - Colitis ischaemic [Unknown]
  - Sepsis [Fatal]
  - Intestinal perforation [Unknown]
  - Abdominal pain [Unknown]
  - Vomiting [Unknown]

NARRATIVE: CASE EVENT DATE: 20191118
